FAERS Safety Report 18339023 (Version 2)
Quarter: 2020Q4

REPORT INFORMATION
  Report Type: Report from Study
  Country: HN (occurrence: HN)
  Receive Date: 20201002
  Receipt Date: 20201103
  Transmission Date: 20210113
  Serious: Yes (Disabling, Other)
  Sender: FDA-Public Use
  Company Number: NVSC2020HN263548

PATIENT
  Age: 75 Year
  Sex: Female

DRUGS (1)
  1. DIOVAN [Suspect]
     Active Substance: VALSARTAN
     Indication: PRODUCT USED FOR UNKNOWN INDICATION
     Dosage: 160 MG, 2 YEARS AGO
     Route: 065

REACTIONS (3)
  - Bone atrophy [Unknown]
  - General physical health deterioration [Unknown]
  - Arthropathy [Unknown]
